FAERS Safety Report 5952419-5 (Version None)
Quarter: 2008Q4

REPORT INFORMATION
  Report Type: 
  Country: None (occurrence: None)
  Receive Date: 20081022
  Receipt Date: 20080529
  Transmission Date: 20090506
  Serious: Yes (Hospitalization)
  Sender: FDA-Public Use
  Company Number: SPV1-2008-01200

PATIENT
  Age: 16 Year
  Sex: Female
  Weight: 53 kg

DRUGS (7)
  1. VYVANSE [Suspect]
     Indication: ATTENTION DEFICIT/HYPERACTIVITY DISORDER
     Dosage: 10 MG, 1X/DAY: QD, ORAL; 70 MG, 1X/DAY: QD, ORAL
     Route: 048
     Dates: start: 20080101, end: 20080528
  2. VYVANSE [Suspect]
     Indication: ATTENTION DEFICIT/HYPERACTIVITY DISORDER
     Dosage: 10 MG, 1X/DAY: QD, ORAL; 70 MG, 1X/DAY: QD, ORAL
     Route: 048
     Dates: start: 20080401
  3. SINGULAIR /01362601/ (MONTELUKAST) [Concomitant]
  4. ALLEGRA /01314201/ (FEXOFENADINE) [Concomitant]
  5. ALBUTEROL /00139501/ (SALBUTAMOL) [Concomitant]
  6. PULMICORT [Concomitant]
  7. NASACORT [Concomitant]

REACTIONS (2)
  - CONVULSION [None]
  - OFF LABEL USE [None]
